FAERS Safety Report 19696945 (Version 1)
Quarter: 2021Q3

REPORT INFORMATION
  Report Type: Other
  Country: CA (occurrence: CA)
  Receive Date: 20210813
  Receipt Date: 20210813
  Transmission Date: 20211014
  Serious: Yes (Life-Threatening, Hospitalization, Other)
  Sender: FDA-Public Use
  Company Number: CA-GLENMARK PHARMACEUTICALS-2021GMK067190

PATIENT

DRUGS (1)
  1. GABAPENTIN. [Suspect]
     Active Substance: GABAPENTIN
     Indication: NEURALGIA
     Dosage: 200 MILLIGRAM
     Route: 048

REACTIONS (6)
  - Urticaria [Recovered/Resolved]
  - Swollen tongue [Recovered/Resolved]
  - Product use in unapproved indication [Unknown]
  - Swelling [Recovered/Resolved]
  - Pruritus [Recovered/Resolved]
  - Anaphylactic reaction [Recovered/Resolved]
